FAERS Safety Report 18649928 (Version 5)
Quarter: 2021Q1

REPORT INFORMATION
  Report Type: Report from Study
  Country: GB (occurrence: GB)
  Receive Date: 20201222
  Receipt Date: 20210126
  Transmission Date: 20210419
  Serious: Yes (Death, Life-Threatening, Hospitalization)
  Sender: FDA-Public Use
  Company Number: GB-CELGENEUS-GBR-20201205299

PATIENT
  Sex: Male
  Weight: 69 kg

DRUGS (5)
  1. AZACITIDINE ORAL (CC?486) [Suspect]
     Active Substance: AZACITIDINE
     Indication: ACUTE MYELOID LEUKAEMIA
     Dosage: 200 MILLIGRAM
     Route: 048
     Dates: start: 20200812, end: 20201214
  2. ACICLOVIR [Concomitant]
     Active Substance: ACYCLOVIR
     Indication: ANTIVIRAL PROPHYLAXIS
     Dosage: 400
     Route: 065
     Dates: start: 20200803
  3. PENICILLIN V [Concomitant]
     Active Substance: PENICILLIN V
     Indication: ANTIBIOTIC PROPHYLAXIS
     Dosage: 250
     Route: 065
     Dates: start: 20200707
  4. OMEPRAZOLE. [Concomitant]
     Active Substance: OMEPRAZOLE
     Indication: ANTACID THERAPY
     Dosage: 20
     Route: 065
     Dates: start: 20200803
  5. ONDANSETRON [Concomitant]
     Active Substance: ONDANSETRON
     Indication: ILLNESS
     Dosage: 8
     Route: 065
     Dates: start: 20200803

REACTIONS (1)
  - Anaemia [Fatal]

NARRATIVE: CASE EVENT DATE: 20201214
